FAERS Safety Report 13899774 (Version 2)
Quarter: 2019Q1

REPORT INFORMATION
  Report Type: Spontaneous
  Country: US (occurrence: US)
  Receive Date: 20170823
  Receipt Date: 20190325
  Transmission Date: 20190417
  Serious: No
  Sender: FDA-Public Use
  Company Number: US-INCYTE CORPORATION-2017IN006271

PATIENT

DRUGS (2)
  1. JAKAFI [Suspect]
     Active Substance: RUXOLITINIB
     Indication: NEOPLASM MALIGNANT
     Dosage: 10 AND 15 MG, EVERY OTHER DAY
     Route: 048
     Dates: start: 20161012
  2. JAKAFI [Suspect]
     Active Substance: RUXOLITINIB
     Indication: MYELOPROLIFERATIVE NEOPLASM
     Dosage: 10 MG, Q48 HOURS
     Route: 048
     Dates: start: 20161012

REACTIONS (4)
  - Off label use [Unknown]
  - Lethargy [Unknown]
  - Malaise [Unknown]
  - Fall [Unknown]
